FAERS Safety Report 19842106 (Version 2)
Quarter: 2021Q3

REPORT INFORMATION
  Report Type: Spontaneous
  Country: US (occurrence: US)
  Receive Date: 20210915
  Receipt Date: 20210928
  Transmission Date: 20211014
  Serious: Yes (Hospitalization, Other)
  Sender: FDA-Public Use
  Company Number: US-FRESENIUS KABI-FK202109731

PATIENT
  Age: 76 Year
  Sex: Male

DRUGS (1)
  1. KETOROLAC TROMETHAMINE INJECTION (MANUFACTURER UNKNOWN) [Suspect]
     Active Substance: KETOROLAC TROMETHAMINE
     Indication: ARTHRALGIA
     Route: 042
     Dates: start: 202104, end: 202104

REACTIONS (3)
  - Thrombosis [Recovering/Resolving]
  - Pulmonary thrombosis [Recovering/Resolving]
  - Hemianaesthesia [Recovering/Resolving]

NARRATIVE: CASE EVENT DATE: 202104
